FAERS Safety Report 8825022 (Version 2)
Quarter: 2012Q4

REPORT INFORMATION
  Report Type: 
  Country: JP (occurrence: JP)
  Receive Date: 20121004
  Receipt Date: 20121031
  Transmission Date: 20130627
  Serious: Yes (Hospitalization)
  Sender: FDA-Public Use
  Company Number: JP-JNJFOC-20121001022

PATIENT
  Age: 44 Year
  Sex: Female

DRUGS (1)
  1. TRAMCET [Suspect]
     Indication: PAIN
     Dosage: 3 doses 1 per 1 day
     Route: 048
     Dates: start: 20120918, end: 20120921

REACTIONS (3)
  - Urticaria [Recovering/Resolving]
  - Nausea [Recovered/Resolved]
  - Dyspnoea [Recovered/Resolved]
